FAERS Safety Report 21155700 (Version 2)
Quarter: 2022Q3

REPORT INFORMATION
  Report Type: Report from Study
  Country: FR (occurrence: None)
  Receive Date: 20220801
  Receipt Date: 20220905
  Transmission Date: 20221027
  Serious: Yes (Death)
  Sender: FDA-Public Use
  Company Number: 2022A267612

PATIENT
  Age: 770 Month
  Sex: Male
  Weight: 69 kg

DRUGS (4)
  1. EVUSHELD [Suspect]
     Active Substance: CILGAVIMAB\TIXAGEVIMAB
     Indication: COVID-19 prophylaxis
     Route: 030
     Dates: start: 20220216, end: 20220713
  2. SOLUPRED [Concomitant]
  3. PROGRAF [Concomitant]
     Active Substance: TACROLIMUS
  4. CERTICAN [Concomitant]
     Active Substance: EVEROLIMUS

REACTIONS (1)
  - COVID-19 [Fatal]

NARRATIVE: CASE EVENT DATE: 20220713
